FAERS Safety Report 25587437 (Version 2)
Quarter: 2025Q3

REPORT INFORMATION
  Report Type: Spontaneous
  Country: US (occurrence: US)
  Receive Date: 20250721
  Receipt Date: 20250724
  Transmission Date: 20251021
  Serious: Yes (Life-Threatening, Hospitalization, Other)
  Sender: PFIZER
  Company Number: US-MLMSERVICE-20250711-PI573942-00050-1

PATIENT
  Age: 48 Year
  Sex: Female

DRUGS (8)
  1. HYDROXYZINE PAMOATE [Interacting]
     Active Substance: HYDROXYZINE PAMOATE
  2. KETAMINE HYDROCHLORIDE [Interacting]
     Active Substance: KETAMINE HYDROCHLORIDE
     Indication: Sedation
  3. AMLODIPINE [Interacting]
     Active Substance: AMLODIPINE BESYLATE
  4. LISINOPRIL [Interacting]
     Active Substance: LISINOPRIL
  5. VENLAFAXINE [Interacting]
     Active Substance: VENLAFAXINE HYDROCHLORIDE
  6. CARIPRAZINE [Interacting]
     Active Substance: CARIPRAZINE
  7. BREXPIPRAZOLE [Interacting]
     Active Substance: BREXPIPRAZOLE
  8. TRAZODONE [Interacting]
     Active Substance: TRAZODONE HYDROCHLORIDE

REACTIONS (9)
  - Drug interaction [Unknown]
  - Intentional overdose [Unknown]
  - Serotonin syndrome [Recovered/Resolved]
  - Distributive shock [Unknown]
  - Angioedema [Unknown]
  - Respiratory distress [Unknown]
  - Hypervolaemia [Unknown]
  - Encephalopathy [Unknown]
  - Intestinal ischaemia [Unknown]
